FAERS Safety Report 8042173-8 (Version None)
Quarter: 2012Q1

REPORT INFORMATION
  Report Type: 
  Country: None (occurrence: None)
  Receive Date: 20120112
  Receipt Date: 20120104
  Transmission Date: 20120608
  Serious: Yes (Death, Other)
  Sender: FDA-Public Use
  Company Number: US-COVIDIEN/TYCO HEALTHCARE/MALLINCKRODT-T201200024

PATIENT
  Age: 5 Year
  Sex: Male

DRUGS (2)
  1. FENTANYL-100 [Suspect]
  2. LINDANE [Concomitant]

REACTIONS (5)
  - CARDIO-RESPIRATORY ARREST [None]
  - BRAIN OEDEMA [None]
  - RETINAL HAEMORRHAGE [None]
  - HYPOXIC-ISCHAEMIC ENCEPHALOPATHY [None]
  - ACCIDENTAL DRUG INTAKE BY CHILD [None]
